FAERS Safety Report 6965374-6 (Version None)
Quarter: 2010Q3

REPORT INFORMATION
  Report Type: 
  Country: None (occurrence: None)
  Receive Date: 20100903
  Receipt Date: 20100825
  Transmission Date: 20110219
  Serious: Yes (Hospitalization)
  Sender: FDA-Public Use
  Company Number: A0797222A

PATIENT
  Age: 65 Year
  Sex: Male

DRUGS (6)
  1. AVANDIA [Suspect]
     Indication: TYPE 2 DIABETES MELLITUS
     Dosage: 2MG TWICE PER DAY
     Route: 048
     Dates: end: 20051031
  2. CAPTOPRIL [Concomitant]
  3. HYDROCHLOROTHIAZIDE [Concomitant]
  4. GLYBURIDE [Concomitant]
  5. TRENTAL [Concomitant]
  6. ZOCOR [Concomitant]

REACTIONS (4)
  - CARDIOMYOPATHY [None]
  - CONDITION AGGRAVATED [None]
  - LIVER FUNCTION TEST ABNORMAL [None]
  - MYOCARDIAL INFARCTION [None]
